FAERS Safety Report 4468165-3 (Version None)
Quarter: 2004Q4

REPORT INFORMATION
  Report Type: 
  Country: None (occurrence: None)
  Receive Date: 20041007
  Receipt Date: 20040520
  Transmission Date: 20050328
  Serious: Yes (Death, Hospitalization, Other)
  Sender: FDA-Public Use
  Company Number: CA-BRISTOL-MYERS SQUIBB COMPANY-12591624

PATIENT
  Age: 77 Year
  Sex: Female

DRUGS (16)
  1. CARBOPLATIN [Suspect]
     Indication: OVARIAN CANCER
     Dosage: CYCLE 1: 15-AUG-2003; CYCLE 2: 26-SEP-2003; CYCLE 4: 17-OCT-2003 (332 MG)
     Route: 042
     Dates: start: 20030926, end: 20030926
  2. PACLITAXEL [Suspect]
     Indication: OVARIAN CANCER
     Dosage: CYCLE 1: 15-AUG-2003, CYCLE 2: 26-SEP-2003; CYCLE 4: 17-OCT-2003 (278 MG)
     Dates: start: 20030926, end: 20030926
  3. INTERFERON GAMMA [Suspect]
     Indication: OVARIAN CANCER
     Dosage: LAST DOSE CYCLE 4: 22-OCT-2003
     Route: 058
     Dates: start: 20031001, end: 20031001
  4. TYLENOL [Concomitant]
     Dates: start: 20030806, end: 20031022
  5. MAGNESIUM-ROUGIER [Concomitant]
     Dates: start: 20030820, end: 20031022
  6. ATENOLOL [Concomitant]
     Dates: start: 20030819, end: 20031026
  7. AAS [Concomitant]
     Dates: start: 20030819
  8. ATIVAN [Concomitant]
     Dates: start: 20030803, end: 20031001
  9. LOZIDE [Concomitant]
     Dates: start: 20030806, end: 20031006
  10. COUMADIN [Concomitant]
     Dates: start: 20031006, end: 20031026
  11. PROCHLORPERAZINE [Concomitant]
     Dates: start: 20030819
  12. DECADRON [Concomitant]
     Dates: start: 20030815, end: 20031017
  13. PEPCID [Concomitant]
     Dates: start: 20030815, end: 20031017
  14. BENADRYL [Concomitant]
     Dates: start: 20030815, end: 20031017
  15. KYTRIL [Concomitant]
     Dates: start: 20030815, end: 20031017
  16. HALDOL [Concomitant]

REACTIONS (22)
  - ABDOMINAL DISTENSION [None]
  - ABDOMINAL PAIN [None]
  - AGITATION [None]
  - ATRIAL FIBRILLATION [None]
  - AZOTAEMIA [None]
  - BACTERIA STOOL IDENTIFIED [None]
  - COLITIS [None]
  - CONFUSIONAL STATE [None]
  - CONSTIPATION [None]
  - DEATH [None]
  - DEHYDRATION [None]
  - DIARRHOEA [None]
  - DRUG TOXICITY [None]
  - DYSPNOEA [None]
  - FEBRILE NEUTROPENIA [None]
  - HYPOTENSION [None]
  - INTESTINAL OBSTRUCTION [None]
  - RENAL FAILURE [None]
  - RENAL FAILURE ACUTE [None]
  - SEPTIC SHOCK [None]
  - VOMITING [None]
  - WHITE BLOOD CELL COUNT INCREASED [None]
